FAERS Safety Report 8484108-X (Version None)
Quarter: 2012Q2

REPORT INFORMATION
  Report Type: 
  Country: None (occurrence: None)
  Receive Date: 20120625
  Receipt Date: 20120613
  Transmission Date: 20120825
  Serious: Yes (Other)
  Sender: FDA-Public Use
  Company Number: 2012P1041283

PATIENT
  Age: 64 Year
  Sex: Male
  Weight: 190 kg

DRUGS (5)
  1. VEIVA-PROSTATE SUPPLEMENT [Concomitant]
  2. TAMBOCOR [Suspect]
     Indication: ATRIAL FIBRILLATION
     Dosage: 100 MG;TID;
     Dates: start: 20120530
  3. TAMBOCOR [Suspect]
     Indication: ATRIAL FIBRILLATION
     Dosage: 100 MG;TID;
     Dates: start: 20000101, end: 20100301
  4. WHEY PROTEIN [Concomitant]
  5. FLECAINIDE ACETATE [Suspect]
     Indication: ATRIAL FIBRILLATION
     Dosage: 100 MG;TID;
     Dates: start: 20100301

REACTIONS (4)
  - PRODUCT SUBSTITUTION ISSUE [None]
  - PRODUCT QUALITY ISSUE [None]
  - CHEST DISCOMFORT [None]
  - BLOOD PRESSURE SYSTOLIC INCREASED [None]
